FAERS Safety Report 25516286 (Version 1)
Quarter: 2025Q3

REPORT INFORMATION
  Report Type: Spontaneous
  Country: US (occurrence: US)
  Receive Date: 20250704
  Receipt Date: 20250704
  Transmission Date: 20251021
  Serious: Yes (Death)
  Sender: TEVA
  Company Number: US-TEVA-VS-3348188

PATIENT
  Age: 84 Year

DRUGS (1)
  1. AUSTEDO [Suspect]
     Active Substance: DEUTETRABENAZINE
     Indication: Meige^s syndrome
     Dosage: 6 MG, 1 TABLET DAILY + 12 MG, 1 TABLET DAILY FOR A TOTAL DOSE OF 18 MG ONCE DAILY
     Route: 065
     Dates: start: 2020

REACTIONS (3)
  - Death [Fatal]
  - Off label use [Unknown]
  - Inappropriate schedule of product administration [Unknown]
